FAERS Safety Report 10153119 (Version 1)
Quarter: 2014Q2

REPORT INFORMATION
  Report Type: Spontaneous
  Country: DE (occurrence: DE)
  Receive Date: 20140505
  Receipt Date: 20140505
  Transmission Date: 20141212
  Serious: Yes (Other)
  Sender: FDA-Public Use
  Company Number: DE-ACTAVIS-2014-08824

PATIENT
  Age: 51 Year
  Sex: Male

DRUGS (7)
  1. ZOPICLONE (UNKNOWN) [Suspect]
     Indication: DRUG ABUSE
     Dosage: 7.5 MG, QHS
     Route: 065
  2. ZOPICLONE (UNKNOWN) [Suspect]
     Indication: INCORRECT DRUG ADMINISTRATION DURATION
  3. PREGABALIN (UNKNOWN) [Suspect]
     Indication: DRUG ABUSE
     Dosage: 900?1200 MG AT NIGHT
     Route: 065
  4. PREGABALIN (UNKNOWN) [Suspect]
     Indication: OVERDOSE
  5. TILIDINE-NALOXONE [Suspect]
     Indication: DRUG ABUSE
     Dosage: 1 DESSERT SPOONFUL, 3?5 TIMES A DAY
     Route: 048
  6. TILIDINE-NALOXONE [Suspect]
     Indication: DRUG DEPENDENCE
  7. TILIDINE-NALOXONE [Suspect]
     Indication: OVERDOSE

REACTIONS (12)
  - Drug abuse [Unknown]
  - Overdose [Recovering/Resolving]
  - Drug dependence [Unknown]
  - Incorrect drug administration duration [Recovered/Resolved]
  - Medication error [None]
  - Mental disorder [None]
  - Abnormal behaviour [None]
  - Intentional product misuse [None]
  - Depression [None]
  - Pain [None]
  - Sleep disorder [None]
  - Stress [None]
